FAERS Safety Report 20721339 (Version 6)
Quarter: 2022Q2

REPORT INFORMATION
  Report Type: Report from Study
  Country: BR (occurrence: BR)
  Receive Date: 20220418
  Receipt Date: 20220620
  Transmission Date: 20220721
  Serious: Yes (Life-Threatening, Hospitalization)
  Sender: FDA-Public Use
  Company Number: BR-GLAXOSMITHKLINE-BR2022GSK065939

PATIENT

DRUGS (15)
  1. BELANTAMAB MAFODOTIN [Suspect]
     Active Substance: BELANTAMAB MAFODOTIN
     Indication: Plasma cell myeloma
     Dosage: 2.5 MG/KG ON DAY 1 OF EVERY 21-DAY CYCLE
     Route: 042
     Dates: start: 20220405
  2. ENTECAVIR [Concomitant]
     Active Substance: ENTECAVIR
     Indication: Hepatitis B reactivation
     Dosage: 5 MG, QD
     Route: 048
     Dates: start: 202003
  3. PANTOPRAZOLE [Concomitant]
     Active Substance: PANTOPRAZOLE
     Indication: Prophylaxis
     Dosage: 20 MG, QD
     Route: 048
     Dates: start: 2020
  4. BACTRIM [Concomitant]
     Active Substance: SULFAMETHOXAZOLE\TRIMETHOPRIM
     Indication: Prophylaxis
     Dosage: UNK UNK, Z
     Route: 048
     Dates: start: 202108
  5. ACYCLOVIR [Concomitant]
     Active Substance: ACYCLOVIR
     Indication: Antiviral prophylaxis
     Dosage: 200 MG, BID
     Route: 048
     Dates: start: 202108
  6. TADALAFIL [Concomitant]
     Active Substance: TADALAFIL
     Indication: Benign prostatic hyperplasia
     Dosage: 5 MG, QD
     Route: 048
     Dates: start: 202106
  7. OSCAL D [Concomitant]
     Active Substance: CALCIUM CARBONATE\CHOLECALCIFEROL
     Indication: Osteoporosis prophylaxis
     Dosage: 1 DF, QD
     Route: 048
     Dates: start: 201804
  8. PERUVIAN MACA [Concomitant]
     Indication: Sexual dysfunction
     Dosage: 1 G, QD
     Route: 048
     Dates: start: 202106
  9. MIRTAZAPINE [Concomitant]
     Active Substance: MIRTAZAPINE
     Indication: Insomnia
     Dosage: 7.5 MG, QD
     Route: 048
     Dates: start: 2018
  10. VITAMIN D3 [Concomitant]
     Active Substance: CHOLECALCIFEROL
     Indication: Osteoporosis prophylaxis
     Dosage: 10000 IU, Z, THREE TIMES PER  WEEK
     Dates: start: 201804
  11. SILDENAFIL CITRATE [Concomitant]
     Active Substance: SILDENAFIL CITRATE
     Indication: Sexual dysfunction
     Dosage: 50 MG, PRN
     Route: 048
     Dates: start: 202106
  12. OMEGA 3 [Concomitant]
     Active Substance: CAPSAICIN
     Indication: Sexual dysfunction
     Dosage: DOSE 1 TWO TIMES PER WEEK
     Dates: start: 202106
  13. ALLOPURINOL [Concomitant]
     Active Substance: ALLOPURINOL
     Indication: Prophylaxis
     Dosage: 300 MG, QD
     Route: 048
     Dates: start: 20220330, end: 20220425
  14. ONDANSETRON [Concomitant]
     Active Substance: ONDANSETRON
     Indication: Infusion related reaction
     Dosage: 8 MG, TID
     Route: 048
     Dates: start: 20220405, end: 20220406
  15. DIPYRONE [Concomitant]
     Active Substance: DIPYRONE
     Indication: Infusion related reaction
     Dosage: 1 G, TID
     Dates: start: 20220405, end: 20220406

REACTIONS (1)
  - Thrombocytopenia [Recovered/Resolved]

NARRATIVE: CASE EVENT DATE: 20220412
